FAERS Safety Report 14315198 (Version 1)
Quarter: 2017Q4

REPORT INFORMATION
  Report Type: Spontaneous
  Country: US (occurrence: US)
  Receive Date: 20171221
  Receipt Date: 20171221
  Transmission Date: 20180321
  Serious: No
  Sender: FDA-Public Use
  Company Number: US-BAYER-2017-240030

PATIENT
  Sex: Male

DRUGS (2)
  1. CIPRO [Suspect]
     Active Substance: CIPROFLOXACIN HYDROCHLORIDE
     Indication: NEPHROLITHIASIS
     Dosage: 500 MG, UNK
     Route: 048
     Dates: start: 20171208
  2. FLOMAX (TAMSULOSIN) [Concomitant]
     Indication: NEPHROLITHIASIS
     Dosage: UNK

REACTIONS (2)
  - Product use in unapproved indication [None]
  - Toothache [Not Recovered/Not Resolved]
